FAERS Safety Report 20831927 (Version 1)
Quarter: 2022Q2

REPORT INFORMATION
  Report Type: 
  Country: None (occurrence: None)
  Receive Date: 20220516
  Receipt Date: 20220516
  Transmission Date: 20220721
  Serious: No
  Sender: FDA-Public Use
  Company Number: JP-CHUGAI-A2021015245ROCHE

PATIENT

DRUGS (11)
  1. RITUXIMAB [Suspect]
     Active Substance: RITUXIMAB
     Dosage: UNK
  2. OBINUTUZUMAB [Suspect]
     Active Substance: OBINUTUZUMAB
     Dates: start: 20200518, end: 20200518
  3. OBINUTUZUMAB [Suspect]
     Active Substance: OBINUTUZUMAB
     Dates: start: 20200525, end: 20200525
  4. OBINUTUZUMAB [Suspect]
     Active Substance: OBINUTUZUMAB
     Dates: start: 20200609, end: 20200609
  5. OBINUTUZUMAB [Suspect]
     Active Substance: OBINUTUZUMAB
     Dates: start: 20200709, end: 20200709
  6. OBINUTUZUMAB [Suspect]
     Active Substance: OBINUTUZUMAB
     Dates: start: 20200805, end: 20200805
  7. PREDNISOLONE [Suspect]
     Active Substance: PREDNISOLONE
  8. VINCRISTINE SULFATE [Suspect]
     Active Substance: VINCRISTINE SULFATE
  9. DOXORUBICIN HYDROCHLORIDE [Suspect]
     Active Substance: DOXORUBICIN HYDROCHLORIDE
  10. CYCLOPHOSPHAMIDE [Suspect]
     Active Substance: CYCLOPHOSPHAMIDE
  11. BENDAMUSTINE HYDROCHLORIDE [Concomitant]
     Active Substance: BENDAMUSTINE HYDROCHLORIDE
     Dosage: DOSAGE IS UNCERTAIN.
     Dates: start: 20200508, end: 20200811

REACTIONS (2)
  - Hepatitis B [None]
  - Therapeutic product effect incomplete [None]

NARRATIVE: CASE EVENT DATE: 20201109
